FAERS Safety Report 23082522 (Version 1)
Quarter: 2023Q4

REPORT INFORMATION
  Report Type: Spontaneous
  Country: TR (occurrence: TR)
  Receive Date: 20231019
  Receipt Date: 20231019
  Transmission Date: 20240109
  Serious: Yes (Other)
  Sender: FDA-Public Use
  Company Number: TR-BAYER-2023A147679

PATIENT
  Age: 72 Year

DRUGS (1)
  1. EYLEA [Suspect]
     Active Substance: AFLIBERCEPT
     Indication: Product used for unknown indication
     Dosage: 1 DF, ONCE, SOL FOR INJECTION, 40MG/ML
     Dates: start: 20231006, end: 20231006

REACTIONS (3)
  - Blindness [Unknown]
  - Endophthalmitis [Unknown]
  - Hypopyon [Unknown]

NARRATIVE: CASE EVENT DATE: 20231009
